FAERS Safety Report 21493355 (Version 6)
Quarter: 2024Q1

REPORT INFORMATION
  Report Type: Report from Study
  Country: ZA (occurrence: ZA)
  Receive Date: 20221021
  Receipt Date: 20240226
  Transmission Date: 20240409
  Serious: Yes (Other)
  Sender: FDA-Public Use
  Company Number: ZA-TAKEDA-2022TUS070827

PATIENT
  Age: 66 Year
  Sex: Female

DRUGS (5)
  1. VEDOLIZUMAB [Suspect]
     Active Substance: VEDOLIZUMAB
     Indication: Crohn^s disease
     Dosage: 300 MILLIGRAM
     Route: 042
     Dates: start: 20220928
  2. INFLIXIMAB [Concomitant]
     Active Substance: INFLIXIMAB
     Dosage: 300 MILLIGRAM, Q6WEEKS
     Route: 042
  3. MIRTAZAPINE [Concomitant]
     Active Substance: MIRTAZAPINE
     Dosage: 15 MILLIGRAM, QD
  4. QUETIAPINE [Concomitant]
     Active Substance: QUETIAPINE
     Dosage: 50 MILLIGRAM, QD
  5. OXYCODONE HYDROCHLORIDE [Concomitant]
     Active Substance: OXYCODONE HYDROCHLORIDE
     Dosage: UNK

REACTIONS (5)
  - Crohn^s disease [Unknown]
  - Inappropriate schedule of product administration [Unknown]
  - Malaise [Unknown]
  - Illness [Unknown]
  - Fatigue [Recovered/Resolved]
